FAERS Safety Report 10958724 (Version 1)
Quarter: 2015Q1

REPORT INFORMATION
  Report Type: Spontaneous
  Country: US (occurrence: None)
  Receive Date: 20150226
  Receipt Date: 20150226
  Transmission Date: 20150721
  Serious: Yes (Other)
  Sender: FDA-Public Use
  Company Number: TPA2009A03864

PATIENT
  Age: 54 Year
  Sex: Male
  Weight: 73.4 kg

DRUGS (5)
  1. ASPIRIN (ACETYLSALICYLIC ACID) [Concomitant]
     Active Substance: ASPIRIN
  2. ANTI-ANXIETY MEDICATION (ALL OTHER THERAPEUTIC PRODUCTS) [Concomitant]
  3. PLAVIX [Concomitant]
     Active Substance: CLOPIDOGREL BISULFATE
  4. UNSPECIFIED CHOLESTEROL MEDICATION (CHOLESTEROL- AND TRIGLYCERIDE REDUCERS) [Concomitant]
  5. PREVACID [Suspect]
     Active Substance: LANSOPRAZOLE
     Indication: GASTROOESOPHAGEAL REFLUX DISEASE
     Route: 048
     Dates: start: 19971119

REACTIONS (3)
  - Coronary artery occlusion [None]
  - Anxiety [None]
  - Arthritis [None]

NARRATIVE: CASE EVENT DATE: 20081119
